FAERS Safety Report 9193218 (Version 2)
Quarter: 2013Q2

REPORT INFORMATION
  Report Type: Spontaneous
  Country: FR (occurrence: FR)
  Receive Date: 20130327
  Receipt Date: 20130403
  Transmission Date: 20140414
  Serious: Yes (Hospitalization)
  Sender: FDA-Public Use
  Company Number: FR-ASTRAZENECA-2013SE17904

PATIENT
  Age: 26886 Day
  Sex: Female

DRUGS (8)
  1. INEXIUM [Suspect]
     Route: 048
     Dates: start: 20130109, end: 20130118
  2. STILNOX [Suspect]
     Route: 048
     Dates: start: 20130110, end: 20130118
  3. SIMVASTATINE [Suspect]
     Route: 048
     Dates: start: 20130111, end: 20130118
  4. PRADAXA [Suspect]
     Indication: CEREBROVASCULAR ACCIDENT
     Route: 048
     Dates: start: 20130111, end: 20130118
  5. ATACAND [Concomitant]
     Indication: HYPERTENSION
     Dosage: 1 DF, DAILY, LONG LASTING TREATMENT.
     Route: 048
  6. ASPEGIC [Concomitant]
     Indication: EMBOLIC STROKE
     Dates: start: 20130109, end: 20130111
  7. LOVENOX [Concomitant]
     Indication: EMBOLIC STROKE
     Dates: start: 20130109, end: 20130111
  8. CETIRIZINE [Concomitant]
     Dates: start: 20130117

REACTIONS (3)
  - Pyrexia [Recovered/Resolved]
  - Renal failure acute [Recovered/Resolved]
  - Rash erythematous [Recovered/Resolved]
